FAERS Safety Report 5721969-9 (Version None)
Quarter: 2008Q2

REPORT INFORMATION
  Report Type: 
  Country: None (occurrence: None)
  Receive Date: 20080429
  Receipt Date: 20080321
  Transmission Date: 20081010
  Serious: Yes (Life-Threatening, Other)
  Sender: FDA-Public Use
  Company Number: JP-BOEHRINGER INGELHEIM GMBH, GERMANY-2008-BP-02642NB

PATIENT
  Age: 68 Year
  Sex: Female

DRUGS (6)
  1. BI-SIFROL TABLETS [Suspect]
     Indication: PARKINSON'S DISEASE
     Route: 048
     Dates: start: 20060707, end: 20080116
  2. CERCINE [Suspect]
     Indication: INSOMNIA
     Route: 048
     Dates: start: 20071031
  3. AMLODIN [Concomitant]
     Indication: HYPERTENSION
     Route: 048
  4. MENESIT [Concomitant]
     Indication: PARKINSON'S DISEASE
     Route: 048
  5. SELEGILINE HCL [Concomitant]
     Indication: PARKINSON'S DISEASE
     Route: 048
  6. GASMOTIN [Concomitant]
     Indication: GASTRITIS
     Route: 048

REACTIONS (2)
  - ROAD TRAFFIC ACCIDENT [None]
  - SUDDEN ONSET OF SLEEP [None]
